FAERS Safety Report 12053017 (Version 1)
Quarter: 2016Q1

REPORT INFORMATION
  Report Type: Spontaneous
  Country: US (occurrence: US)
  Receive Date: 20160209
  Receipt Date: 20160209
  Transmission Date: 20160526
  Serious: Yes (Other)
  Sender: FDA-Public Use
  Company Number: US-009507513-1602USA003850

PATIENT
  Sex: Female

DRUGS (1)
  1. IMPLANON [Suspect]
     Active Substance: ETONOGESTREL
     Indication: CONTRACEPTION
     Dosage: DOSE/FREQUENCY: 1 ROD/ONCE
     Route: 059
     Dates: start: 201011

REACTIONS (7)
  - Pain in extremity [Unknown]
  - Limb discomfort [Unknown]
  - Blindness [Unknown]
  - Headache [Unknown]
  - Peripheral swelling [Unknown]
  - Incorrect drug administration duration [Unknown]
  - Implant site pain [Unknown]

NARRATIVE: CASE EVENT DATE: 201101
